FAERS Safety Report 23752562 (Version 2)
Quarter: 2024Q2

REPORT INFORMATION
  Report Type: Report from Study
  Country: US (occurrence: US)
  Receive Date: 20240417
  Receipt Date: 20240419
  Transmission Date: 20240716
  Serious: Yes (Life-Threatening, Other)
  Sender: FDA-Public Use
  Company Number: US-TAKEDA-2022TUS018605

PATIENT
  Age: 13 Year
  Sex: Male
  Weight: 54 kg

DRUGS (6)
  1. BRIGATINIB [Suspect]
     Active Substance: BRIGATINIB
     Indication: Neurofibromatosis
     Dosage: 180 MILLIGRAM, QD
     Route: 048
     Dates: start: 20220317, end: 20231129
  2. BRIGATINIB [Suspect]
     Active Substance: BRIGATINIB
     Indication: Deafness
     Dosage: 90 MILLIGRAM, QD
     Route: 048
     Dates: start: 20220323, end: 20220324
  3. BRIGATINIB [Suspect]
     Active Substance: BRIGATINIB
     Indication: Brain neoplasm
     Dosage: 60 MILLIGRAM
     Route: 048
  4. BRIGATINIB [Suspect]
     Active Substance: BRIGATINIB
     Indication: Lung neoplasm malignant
     Dosage: 30 MILLIGRAM, QD
     Route: 048
  5. BRIGATINIB [Suspect]
     Active Substance: BRIGATINIB
     Dosage: 90 MILLIGRAM, QD
     Route: 048
  6. MELATONIN [Concomitant]
     Active Substance: MELATONIN
     Dosage: UNK
     Route: 065

REACTIONS (8)
  - Brain operation [Unknown]
  - Chest pain [Recovered/Resolved]
  - Cough [Recovered/Resolved]
  - Malaise [Not Recovered/Not Resolved]
  - Memory impairment [Unknown]
  - Product use issue [Unknown]
  - Product dose omission issue [Unknown]
  - Off label use [Unknown]

NARRATIVE: CASE EVENT DATE: 20220324
